FAERS Safety Report 20546651 (Version 1)
Quarter: 2022Q1

REPORT INFORMATION
  Report Type: Spontaneous
  Country: ES (occurrence: ES)
  Receive Date: 20220303
  Receipt Date: 20220303
  Transmission Date: 20220423
  Serious: Yes (Hospitalization)
  Sender: FDA-Public Use
  Company Number: None

PATIENT
  Age: 81 Year
  Sex: Male

DRUGS (12)
  1. EPLERENONE [Suspect]
     Active Substance: EPLERENONE
     Indication: Myocardial ischaemia
     Dosage: 25 MG, 1X/DAY (25 MG/24 H )
     Route: 048
     Dates: start: 20111105, end: 20200910
  2. RANOLAZINE [Suspect]
     Active Substance: RANOLAZINE
     Indication: Myocardial ischaemia
     Dosage: 750 MG, 2X/DAY (750 MG /12 H)
     Route: 048
     Dates: start: 20140828, end: 20200913
  3. NITROGLYCERIN [Suspect]
     Active Substance: NITROGLYCERIN
     Indication: Myocardial ischaemia
     Dosage: 10 MG, 1X/DAY (10 MG/24 H )
     Route: 050
     Dates: start: 20120728, end: 20200914
  4. ATORVASTATIN CALCIUM [Concomitant]
     Active Substance: ATORVASTATIN CALCIUM
     Indication: Primary hypercholesterolaemia
     Dosage: 20 MG, 1X/DAY (20.0 MG AT DINNER)
     Route: 048
     Dates: start: 20100914
  5. CARBIDOPA\LEVODOPA [Concomitant]
     Active Substance: CARBIDOPA\LEVODOPA
     Indication: Parkinson^s disease
     Dosage: 1 TABLET, 3X/DAY (BREAKFAST-LUNCH-DINNER)
     Route: 048
     Dates: start: 20191002
  6. ALTINA [RASAGILINE TARTRATE] [Concomitant]
     Indication: Parkinson^s disease
     Dosage: 1 MG, 1X/DAY AT BREAKFAST
     Route: 048
     Dates: start: 20190727
  7. ALPRAZOLAM [Concomitant]
     Active Substance: ALPRAZOLAM
     Indication: Anxiety
     Dosage: 0.25 MG, 1X/DAY (0.25 MG/24 H)
     Route: 048
     Dates: start: 20160729
  8. MOTILIUM [Concomitant]
     Active Substance: DOMPERIDONE
     Dosage: 10 MG, 3X/DAY BEFORE BREAKFAST-LUNCH-DINNER
     Route: 048
     Dates: start: 20191002
  9. FUROSEMIDE [Concomitant]
     Active Substance: FUROSEMIDE
     Indication: Angina pectoris
     Dosage: 20 MG, 1X/DAY BEFORE BREAKFAST
     Route: 048
     Dates: start: 20140829
  10. LANSOPRAZOL CINFA [Concomitant]
     Indication: Gastrooesophageal reflux disease
     Dosage: 15 MG, 1X/DAY BEFORE BREAKFAST
     Route: 048
     Dates: start: 20200128
  11. CAFFEINE CITRATE\NITROGLYCERIN [Concomitant]
     Active Substance: CAFFEINE CITRATE\NITROGLYCERIN
     Indication: Myocardial ischaemia
     Dosage: 1 MG, 1X/DAY (1 MG/24 H)
     Route: 060
     Dates: start: 20111105
  12. ASPIRIN [Concomitant]
     Active Substance: ASPIRIN
     Indication: Cerebral thrombosis
     Dosage: 100 MG, 1X/DAY AT BREAKFAST
     Route: 048
     Dates: start: 20100811

REACTIONS (1)
  - Orthostatic hypotension [Recovered/Resolved]

NARRATIVE: CASE EVENT DATE: 20200908
